FAERS Safety Report 4699774-4 (Version None)
Quarter: 2005Q2

REPORT INFORMATION
  Report Type: 
  Country: None (occurrence: None)
  Receive Date: 20050126
  Receipt Date: 20050126
  Transmission Date: 20051028
  Serious: Yes (Other)
  Sender: FDA-Public Use
  Company Number: None

PATIENT
  Sex: Female

DRUGS (3)
  1. CARBAMAZEPINE [Suspect]
     Indication: BIPOLAR DISORDER
     Dosage: 200MG - 5 DAILY
     Dates: start: 19921211, end: 19960801
  2. LORAZEPAM [Concomitant]
  3. THIORIDAZINE [Concomitant]

REACTIONS (7)
  - CONDITION AGGRAVATED [None]
  - FURUNCLE [None]
  - MENTAL DISORDER [None]
  - PAIN OF SKIN [None]
  - PHARMACEUTICAL PRODUCT COMPLAINT [None]
  - PRURITUS [None]
  - SKIN INFECTION [None]
